FAERS Safety Report 5817458-3 (Version None)
Quarter: 2008Q3

REPORT INFORMATION
  Report Type: 
  Country: None (occurrence: None)
  Receive Date: 20080715
  Receipt Date: 20080705
  Transmission Date: 20090109
  Serious: Yes (Other)
  Sender: FDA-Public Use
  Company Number: 2006JP003574

PATIENT

DRUGS (1)
  1. PROGRAF [Suspect]
     Indication: LIVER TRANSPLANT

REACTIONS (1)
  - REVERSIBLE POSTERIOR LEUKOENCEPHALOPATHY SYNDROME [None]
